FAERS Safety Report 6610271-9 (Version None)
Quarter: 2010Q1

REPORT INFORMATION
  Report Type: 
  Country: None (occurrence: None)
  Receive Date: 20100302
  Receipt Date: 20100223
  Transmission Date: 20100710
  Serious: Yes (Hospitalization)
  Sender: FDA-Public Use
  Company Number: AU-MERCK-1002USA03726

PATIENT
  Age: 68 Year
  Sex: Female

DRUGS (12)
  1. ZOCOR [Suspect]
     Indication: CARDIAC DISORDER
     Route: 048
     Dates: start: 20050101
  2. QUETIAPINE FUMARATE [Concomitant]
     Indication: MENTAL DISORDER
     Dosage: NOCTE
     Route: 065
  3. QUETIAPINE FUMARATE [Concomitant]
     Dosage: MANE
     Route: 065
  4. LITHIUM CARBONATE [Concomitant]
     Indication: MENTAL DISORDER
     Route: 065
  5. ESCITALOPRAM [Concomitant]
     Indication: MENTAL DISORDER
     Dosage: MANE
     Route: 065
  6. DIAZEPAM [Concomitant]
     Indication: MENTAL DISORDER
     Dosage: MANE
     Route: 048
  7. ASPIRIN [Concomitant]
     Indication: MENTAL DISORDER
     Dosage: MANE
     Route: 065
  8. PERINDOPRIL [Concomitant]
     Indication: MENTAL DISORDER
     Dosage: MANE
     Route: 065
  9. DIGOXIN [Concomitant]
     Indication: MENTAL DISORDER
     Dosage: 62.5 / KG MANE
     Route: 065
  10. BROMOCRIPTINE [Concomitant]
     Indication: NEUROLEPTIC MALIGNANT SYNDROME
     Route: 065
     Dates: start: 20080101
  11. DIAZEPAM [Concomitant]
     Indication: NEUROLEPTIC MALIGNANT SYNDROME
     Route: 048
     Dates: start: 20080101
  12. CLARITHROMYCIN [Suspect]
     Indication: LOWER RESPIRATORY TRACT INFECTION
     Route: 065
     Dates: start: 20080101

REACTIONS (3)
  - DELIRIUM [None]
  - DRUG INTERACTION [None]
  - LABORATORY TEST ABNORMAL [None]
